FAERS Safety Report 15183119 (Version 1)
Quarter: 2018Q3

REPORT INFORMATION
  Report Type: Spontaneous
  Country: US (occurrence: US)
  Receive Date: 20180723
  Receipt Date: 20180723
  Transmission Date: 20181010
  Serious: No
  Sender: FDA-Public Use
  Company Number: US-AYTU BIOSCIENCES, INC.-2018AYT000030

PATIENT

DRUGS (1)
  1. NATESTO [Suspect]
     Active Substance: TESTOSTERONE
     Indication: BLOOD TESTOSTERONE DECREASED
     Dosage: 33 MG, UNK
     Route: 045

REACTIONS (1)
  - Product use issue [Unknown]
